FAERS Safety Report 4772588-2 (Version None)
Quarter: 2005Q3

REPORT INFORMATION
  Report Type: 
  Country: None (occurrence: None)
  Receive Date: 20050916
  Receipt Date: 20050916
  Transmission Date: 20060218
  Serious: Yes (Hospitalization)
  Sender: FDA-Public Use
  Company Number: None

PATIENT
  Age: 78 Year
  Sex: Female
  Weight: 81.6475 kg

DRUGS (4)
  1. LEVOFLOXACIN [Suspect]
     Indication: CHRONIC OBSTRUCTIVE PULMONARY DISEASE
     Dosage: 500 MG DAILY IV
     Route: 042
     Dates: start: 20050826, end: 20050831
  2. LEVOFLOXACIN [Suspect]
     Indication: PNEUMONIA
     Dosage: 500 MG DAILY IV
     Route: 042
     Dates: start: 20050826, end: 20050831
  3. CEFTRIAXONE [Suspect]
     Indication: CHRONIC OBSTRUCTIVE PULMONARY DISEASE
     Dosage: 1 GM DAILY IV
     Route: 042
     Dates: start: 20050830, end: 20050902
  4. CEFTRIAXONE [Suspect]
     Indication: PNEUMONIA
     Dosage: 1 GM DAILY IV
     Route: 042
     Dates: start: 20050830, end: 20050902

REACTIONS (1)
  - DIARRHOEA [None]
